FAERS Safety Report 4595126-6 (Version None)
Quarter: 2005Q1

REPORT INFORMATION
  Report Type: 
  Country: None (occurrence: None)
  Receive Date: 20050224
  Receipt Date: 20031117
  Transmission Date: 20050727
  Serious: Yes (Other)
  Sender: FDA-Public Use
  Company Number: GXKR2003US00642

PATIENT
  Age: 57 Year
  Sex: Female

DRUGS (2)
  1. NEFAZODONE HCL [Suspect]
  2. TRAMADOL HCL [Suspect]
     Indication: BACK PAIN
     Dosage: 50 MG, BID, ORAL
     Route: 048

REACTIONS (3)
  - DRUG INTERACTION [None]
  - REFUSAL OF EXAMINATION [None]
  - SEROTONIN SYNDROME [None]
